FAERS Safety Report 21860850 (Version 1)
Quarter: 2023Q1

REPORT INFORMATION
  Report Type: Spontaneous
  Country: US (occurrence: None)
  Receive Date: 20230113
  Receipt Date: 20230113
  Transmission Date: 20230417
  Serious: Yes (Hospitalization)
  Sender: FDA-Public Use
  Company Number: None

PATIENT
  Sex: Female
  Weight: 63.5 kg

DRUGS (24)
  1. EPCLUSA [Suspect]
     Active Substance: SOFOSBUVIR\VELPATASVIR
     Indication: Hepatitis C
     Dosage: 400-100 MG TABLET ONCE DAILY BY MOUTH
     Route: 048
     Dates: start: 20181026, end: 20190118
  2. ALENDRONATE [Concomitant]
     Active Substance: ALENDRONATE SODIUM
  3. VITAMIN D [Concomitant]
     Active Substance: VITAMIN D NOS
  4. VITAMINS [Concomitant]
     Active Substance: VITAMINS
  5. BIMATOPROST [Concomitant]
     Active Substance: BIMATOPROST
  6. PROGRAF [Concomitant]
     Active Substance: TACROLIMUS
  7. VALGANCICLOVIR [Concomitant]
     Active Substance: VALGANCICLOVIR
  8. DILTIAZEM [Concomitant]
     Active Substance: DILTIAZEM
  9. TINZAPARIN [Concomitant]
     Active Substance: TINZAPARIN
  10. QUETIAPINE [Concomitant]
     Active Substance: QUETIAPINE
  11. SEPTRA [Concomitant]
     Active Substance: SULFAMETHOXAZOLE\TRIMETHOPRIM
  12. ACETAMINOPHEN [Concomitant]
     Active Substance: ACETAMINOPHEN
  13. CASPOFUNGIN [Concomitant]
     Active Substance: CASPOFUNGIN
  14. ZOPICLONE [Concomitant]
     Active Substance: ZOPICLONE
  15. MAGNESIUM OXIDE [Concomitant]
     Active Substance: MAGNESIUM OXIDE
  16. MYFORTIC [Concomitant]
     Active Substance: MYCOPHENOLATE SODIUM
  17. HYDROCODONE [Concomitant]
     Active Substance: HYDROCODONE
  18. PREDNISONE [Concomitant]
     Active Substance: PREDNISONE
  19. TRIAZOLAM [Concomitant]
     Active Substance: TRIAZOLAM
  20. BISOPROLOL [Concomitant]
     Active Substance: BISOPROLOL
  21. ASPIRIN [Concomitant]
     Active Substance: ASPIRIN
  22. ESTRADIOL [Concomitant]
  23. LAXADAY [Concomitant]
  24. SENNA [Concomitant]
     Active Substance: SENNA LEAF\SENNOSIDES\SENNOSIDES A AND B

REACTIONS (8)
  - Cardiac failure congestive [None]
  - Atrial flutter [None]
  - Tachyarrhythmia [None]
  - Infection [None]
  - Hypoxia [None]
  - Purulent discharge [None]
  - Secretion discharge [None]
  - Influenza [None]

NARRATIVE: CASE EVENT DATE: 20190604
